FAERS Safety Report 12896535 (Version 1)
Quarter: 2016Q4

REPORT INFORMATION
  Report Type: Spontaneous
  Country: US (occurrence: US)
  Receive Date: 20161028
  Receipt Date: 20161028
  Transmission Date: 20170207
  Serious: Yes (Other)
  Sender: FDA-Public Use
  Company Number: None

PATIENT
  Age: 47 Year
  Sex: Female
  Weight: 137.7 kg

DRUGS (14)
  1. CARTIA XT [Concomitant]
     Active Substance: DILTIAZEM HYDROCHLORIDE
  2. LISINOPRIL. [Concomitant]
     Active Substance: LISINOPRIL
  3. FLEXERIL [Concomitant]
     Active Substance: CYCLOBENZAPRINE HYDROCHLORIDE
  4. VITAMIN D2 [Concomitant]
     Active Substance: ERGOCALCIFEROL
  5. METOPROLOL TARTRATE 25MG TABLETS [Suspect]
     Active Substance: METOPROLOL TARTRATE
     Indication: ATRIAL TACHYCARDIA
     Dosage: ?          QUANTITY:60 TABLET(S);?
     Route: 048
     Dates: start: 20161026, end: 20161027
  6. CHANTIX [Concomitant]
     Active Substance: VARENICLINE TARTRATE
  7. HYDROCODONE [Concomitant]
     Active Substance: HYDROCODONE
  8. HYDROCHLORRHIAZIDE [Concomitant]
  9. BREO ELLIPTA [Concomitant]
     Active Substance: FLUTICASONE FUROATE\VILANTEROL TRIFENATATE
  10. SERTRALINE [Concomitant]
     Active Substance: SERTRALINE HYDROCHLORIDE
  11. NICOTROL [Concomitant]
     Active Substance: NICOTINE
  12. PRO AIR ALBUTEROL INHALER [Concomitant]
  13. GABAPENTIN. [Concomitant]
     Active Substance: GABAPENTIN
  14. IPRATROPIUM/ALBUTEROL [Concomitant]
     Active Substance: ALBUTEROL\IPRATROPIUM

REACTIONS (15)
  - Gait disturbance [None]
  - Oropharyngeal pain [None]
  - Chest pain [None]
  - Feeling drunk [None]
  - Hypersomnia [None]
  - Heart rate decreased [None]
  - Head discomfort [None]
  - Feeling abnormal [None]
  - Malaise [None]
  - Back pain [None]
  - Nausea [None]
  - Cough [None]
  - Muscle spasms [None]
  - Headache [None]
  - Hypotension [None]

NARRATIVE: CASE EVENT DATE: 20161027
